FAERS Safety Report 6400904-4 (Version None)
Quarter: 2009Q4

REPORT INFORMATION
  Report Type: 
  Country: None (occurrence: None)
  Receive Date: 20091009
  Receipt Date: 20090922
  Transmission Date: 20100525
  Serious: No
  Sender: FDA-Public Use
  Company Number: 1-18766282

PATIENT
  Sex: Female

DRUGS (14)
  1. WARFARIN SODIUM [Suspect]
     Indication: ANTICOAGULANT THERAPY
     Dosage: 2.5 MG DAILY, ORAL
     Route: 048
     Dates: start: 20090530, end: 20090608
  2. LORAZEPAM [Concomitant]
  3. DILTIAZEM [Concomitant]
  4. BACLOFEN [Concomitant]
  5. GABAPENTIN [Concomitant]
  6. FLECAINIDE 50 MG [Concomitant]
  7. MELOXICAM 3.75 MG [Concomitant]
  8. TRIAMTERENE/HYDROCHLOROTHLAZIDE 47.5/25 MG [Concomitant]
  9. SINGULAIR [Concomitant]
  10. SANCTURA [Concomitant]
  11. PRAVASTATIN 30 MG [Concomitant]
  12. TRAZODONE HCL [Concomitant]
  13. DULCOLAX [Concomitant]
  14. OXYGEN [Concomitant]

REACTIONS (12)
  - ATRIOVENTRICULAR BLOCK FIRST DEGREE [None]
  - BLOOD UREA INCREASED [None]
  - CHEST PAIN [None]
  - DRUG INEFFECTIVE [None]
  - DYSPNOEA [None]
  - FIBRIN D DIMER INCREASED [None]
  - HAEMOGLOBIN DECREASED [None]
  - INTERNATIONAL NORMALISED RATIO DECREASED [None]
  - JOINT SWELLING [None]
  - MALAISE [None]
  - SINUS BRADYCARDIA [None]
  - THROMBOSIS [None]
